FAERS Safety Report 5358309-3 (Version None)
Quarter: 2007Q2

REPORT INFORMATION
  Report Type: 
  Country: None (occurrence: None)
  Receive Date: 20070614
  Receipt Date: 20070614
  Transmission Date: 20071010
  Serious: Yes (Death, Hospitalization)
  Sender: FDA-Public Use
  Company Number: None

PATIENT
  Age: 69 Year
  Sex: Female

DRUGS (4)
  1. SULFAMETHOXAZOLE AND TRIMETHOPRIM [Suspect]
     Indication: URINARY TRACT INFECTION
     Dosage: 1 TABLET BY MOUTH EVERY 12 HOURS
     Route: 048
     Dates: start: 20060227, end: 20060228
  2. AMOXICILLIN [Concomitant]
  3. GENTAMICIN [Concomitant]
  4. CIPRO [Concomitant]

REACTIONS (11)
  - ANAPHYLACTIC REACTION [None]
  - CLOSTRIDIUM DIFFICILE COLITIS [None]
  - CONFUSIONAL STATE [None]
  - DEHYDRATION [None]
  - DIALYSIS [None]
  - DYSPNOEA [None]
  - FATIGUE [None]
  - HYPOTENSION [None]
  - LARGE INTESTINE PERFORATION [None]
  - MENINGITIS ASEPTIC [None]
  - RASH [None]
